FAERS Safety Report 22028363 (Version 1)
Quarter: 2023Q1

REPORT INFORMATION
  Report Type: Report from Study
  Country: US (occurrence: US)
  Receive Date: 20230223
  Receipt Date: 20230223
  Transmission Date: 20230417
  Serious: Yes (Other)
  Sender: FDA-Public Use
  Company Number: US-ABBVIE-4315324

PATIENT
  Sex: Male

DRUGS (12)
  1. RINVOQ [Suspect]
     Active Substance: UPADACITINIB
     Indication: Dermatitis atopic
     Route: 048
     Dates: start: 202209
  2. CYCLOBENZAPRINE HCL 10 MG TABLET. [Concomitant]
     Indication: Product used for unknown indication
  3. OXYCODONE HCL ER 40 MG TAB ER 12H [Concomitant]
     Indication: Product used for unknown indication
  4. OMEPRAZOLE 40 MG CAPSULE DR [Concomitant]
     Indication: Product used for unknown indication
  5. ELIQUIS 5 MG TABLET. [Concomitant]
     Indication: Product used for unknown indication
  6. ASPIRIN 81 MG TAB CHEW [Concomitant]
     Indication: Product used for unknown indication
  7. SIMVASTATIN 20 MG TABLET. [Concomitant]
     Indication: Product used for unknown indication
  8. TOPIRAMATE 25 MG TABLET. [Concomitant]
     Indication: Product used for unknown indication
  9. DILTIAZEM 24HR ER (XR) [Concomitant]
     Indication: Product used for unknown indication
  10. METHOCARBAMOL 750 MG TABLET. [Concomitant]
     Indication: Product used for unknown indication
  11. KLONOPIN 0.5 MG TABLET. [Concomitant]
     Indication: Product used for unknown indication
  12. PROAIR DIGIHALER 90 MCG AER PW BAS [Concomitant]
     Indication: Product used for unknown indication

REACTIONS (1)
  - Back pain [Unknown]
